FAERS Safety Report 8788662 (Version 3)
Quarter: 2013Q4

REPORT INFORMATION
  Report Type: Spontaneous
  Country: CN (occurrence: CN)
  Receive Date: 20120916
  Receipt Date: 20131105
  Transmission Date: 20140711
  Serious: Yes (Hospitalization)
  Sender: FDA-Public Use
  Company Number: PHHY2012CN078553

PATIENT
  Age: 72 Year
  Sex: Female

DRUGS (2)
  1. VOLTAREN SR [Suspect]
     Indication: ARTHRALGIA
     Dosage: 1 DF, PER DAY
     Route: 048
     Dates: start: 20080701, end: 20080703
  2. DIOVAN [Concomitant]
     Indication: HYPERTENSION
     Dosage: 1 DF, PER DAY
     Route: 048
     Dates: start: 201208

REACTIONS (4)
  - Spinal osteoarthritis [Recovering/Resolving]
  - Headache [Recovering/Resolving]
  - Pain in extremity [Recovering/Resolving]
  - Oedema peripheral [Recovering/Resolving]
